FAERS Safety Report 6199961-2 (Version None)
Quarter: 2009Q2

REPORT INFORMATION
  Report Type: 
  Country: None (occurrence: None)
  Receive Date: 20090522
  Receipt Date: 20090514
  Transmission Date: 20091009
  Serious: Yes (Hospitalization)
  Sender: FDA-Public Use
  Company Number: US-TYCO HEALTHCARE/MALLINCKRODT-T200901062

PATIENT
  Age: 62 Year
  Sex: Male

DRUGS (2)
  1. OPTIRAY 300 [Suspect]
     Indication: COMPUTERISED TOMOGRAM
     Dosage: 80 ML, SINGLE
     Route: 042
     Dates: start: 20090514, end: 20090514
  2. SODIUM CHLORIDE [Suspect]
     Indication: COMPUTERISED TOMOGRAM
     Dosage: 20 ML, SINGLE
     Route: 042
     Dates: start: 20090514, end: 20090514

REACTIONS (2)
  - AIR EMBOLISM [None]
  - DRUG ADMINISTRATION ERROR [None]
